FAERS Safety Report 8731069 (Version 4)
Quarter: 2012Q4

REPORT INFORMATION
  Report Type: 
  Country: US (occurrence: US)
  Receive Date: 20120820
  Receipt Date: 20121109
  Transmission Date: 20130627
  Serious: Yes (Hospitalization, Other)
  Sender: FDA-Public Use
  Company Number: US-BIOGENIDEC-2012BI030317

PATIENT
  Age: 42 Year
  Sex: Female

DRUGS (1)
  1. AVONEX [Suspect]
     Indication: MULTIPLE SCLEROSIS
     Route: 030
     Dates: start: 20120501, end: 20120803

REACTIONS (12)
  - Cellulitis [Recovered/Resolved]
  - Loss of consciousness [Recovered/Resolved]
  - Epilepsy [Recovered/Resolved]
  - Ascites [Recovered/Resolved]
  - Skin injury [Recovered/Resolved]
  - Oedema peripheral [Not Recovered/Not Resolved]
  - Cognitive disorder [Not Recovered/Not Resolved]
  - Injection site swelling [Not Recovered/Not Resolved]
  - Vascular rupture [Not Recovered/Not Resolved]
  - Oedema [Not Recovered/Not Resolved]
  - Influenza like illness [Recovered/Resolved]
  - Injection site reaction [Not Recovered/Not Resolved]
